FAERS Safety Report 21693732 (Version 2)
Quarter: 2022Q4

REPORT INFORMATION
  Report Type: Spontaneous
  Country: CN (occurrence: CN)
  Receive Date: 20221207
  Receipt Date: 20221212
  Transmission Date: 20230112
  Serious: Yes (Other)
  Sender: FDA-Public Use
  Company Number: CN-002147023-NVSC2022CN280917

PATIENT
  Sex: Female
  Weight: 52 kg

DRUGS (1)
  1. TOBRAMYCIN [Suspect]
     Active Substance: TOBRAMYCIN
     Indication: Inflammation
     Dosage: 0.3 G, QD
     Route: 047
     Dates: start: 20221129, end: 20221129

REACTIONS (9)
  - Foreign body sensation in eyes [Recovering/Resolving]
  - Photophobia [Recovering/Resolving]
  - Corneal opacity [Recovering/Resolving]
  - Oedema [Recovering/Resolving]
  - Conjunctival staining [Unknown]
  - Eye pain [Recovering/Resolving]
  - Lacrimation increased [Recovering/Resolving]
  - Conjunctival hyperaemia [Unknown]
  - Corneal disorder [Unknown]

NARRATIVE: CASE EVENT DATE: 20221129
